FAERS Safety Report 19025719 (Version 1)
Quarter: 2021Q1

REPORT INFORMATION
  Report Type: Spontaneous
  Country: CN (occurrence: CN)
  Receive Date: 20210318
  Receipt Date: 20210318
  Transmission Date: 20210420
  Serious: Yes (Life-Threatening, Hospitalization)
  Sender: FDA-Public Use
  Company Number: CN-EISAI MEDICAL RESEARCH-EC-2021-089674

PATIENT
  Age: 76 Year
  Sex: Male
  Weight: 63 kg

DRUGS (1)
  1. LENVIMA [Suspect]
     Active Substance: LENVATINIB
     Indication: HEPATIC CANCER STAGE IV
     Route: 048
     Dates: start: 20210117, end: 20210131

REACTIONS (9)
  - Cough [Recovering/Resolving]
  - Asthenia [Recovering/Resolving]
  - Pollakiuria [Recovering/Resolving]
  - Altered state of consciousness [Recovering/Resolving]
  - Pruritus [Recovering/Resolving]
  - Hepatic function abnormal [Recovering/Resolving]
  - Psychiatric symptom [Recovering/Resolving]
  - Urinary incontinence [Recovering/Resolving]
  - Fatigue [Recovering/Resolving]

NARRATIVE: CASE EVENT DATE: 20210124
